FAERS Safety Report 9877261 (Version 3)
Quarter: 2014Q2

REPORT INFORMATION
  Report Type: Spontaneous
  Country: US (occurrence: US)
  Receive Date: 20140206
  Receipt Date: 20140401
  Transmission Date: 20141212
  Serious: Yes (Hospitalization, Other)
  Sender: FDA-Public Use
  Company Number: US-CELGENEUS-163-21880-12071775

PATIENT
  Age: 77 Year
  Sex: Male

DRUGS (4)
  1. REVLIMID [Suspect]
     Indication: PLASMA CELL MYELOMA
     Dosage: 10 MILLIGRAM
     Route: 048
     Dates: start: 20120614, end: 20120706
  2. VELCADE [Suspect]
     Indication: PLASMA CELL MYELOMA
     Route: 065
     Dates: start: 201006, end: 20110224
  3. DEXAMETHASONE [Suspect]
     Indication: PLASMA CELL MYELOMA
     Route: 048
     Dates: start: 20120614, end: 20120706
  4. ZOMETA [Concomitant]
     Indication: HYPERCALCAEMIA
     Route: 041
     Dates: start: 20120614, end: 20130103

REACTIONS (8)
  - Mental status changes [Recovered/Resolved]
  - Pancytopenia [Unknown]
  - Anaemia [Recovered/Resolved]
  - Neuropathy peripheral [Not Recovered/Not Resolved]
  - Vision blurred [Recovered/Resolved]
  - Plasma cell myeloma [Recovered/Resolved]
  - White blood cell count decreased [Recovered/Resolved]
  - Platelet count decreased [Recovered/Resolved]
